FAERS Safety Report 9988215 (Version 2)
Quarter: 2014Q1

REPORT INFORMATION
  Report Type: Spontaneous
  Country: US (occurrence: US)
  Receive Date: 20140309
  Receipt Date: 20140309
  Transmission Date: 20141002
  Serious: Yes (Other)
  Sender: FDA-Public Use
  Company Number: US-GE HEALTHCARE MEDICAL DIAGNOSTICS-OSCN-PR-0809S-0539

PATIENT
  Age: 38 Year
  Sex: Female

DRUGS (21)
  1. OMNISCAN [Suspect]
     Indication: ABDOMINAL PAIN
     Route: 042
     Dates: start: 20060625, end: 20060625
  2. MAGNEVIST [Suspect]
     Indication: MIGRAINE
     Route: 042
     Dates: start: 20060119, end: 20060119
  3. ISOVUE [Suspect]
     Indication: PULMONARY EMBOLISM
     Dates: start: 20060118, end: 20060118
  4. COUMADIN [Concomitant]
     Indication: DEEP VEIN THROMBOSIS
  5. EPOGEN [Concomitant]
     Indication: ANAEMIA
  6. PREDNISONE [Concomitant]
     Indication: GRANULOMATOSIS WITH POLYANGIITIS
  7. PREDNISONE [Concomitant]
     Indication: GOODPASTURE^S SYNDROME
  8. CYTOXAN [Concomitant]
     Indication: GRANULOMATOSIS WITH POLYANGIITIS
  9. CYTOXAN [Concomitant]
     Indication: GOODPASTURE^S SYNDROME
  10. AUGMENTIN [Concomitant]
     Indication: PRODUCT USED FOR UNKNOWN INDICATION
  11. PROZAC [Concomitant]
     Indication: PRODUCT USED FOR UNKNOWN INDICATION
  12. FOLIC ACID [Concomitant]
     Indication: PRODUCT USED FOR UNKNOWN INDICATION
  13. LASIX [Concomitant]
     Indication: PRODUCT USED FOR UNKNOWN INDICATION
  14. PROTONIX [Concomitant]
     Indication: PRODUCT USED FOR UNKNOWN INDICATION
  15. NORVASC [Concomitant]
     Indication: PRODUCT USED FOR UNKNOWN INDICATION
  16. PERCOCET [Concomitant]
     Indication: PRODUCT USED FOR UNKNOWN INDICATION
  17. IMURAN [Concomitant]
     Indication: GRANULOMATOSIS WITH POLYANGIITIS
  18. IMURAN [Concomitant]
     Indication: GOODPASTURE^S SYNDROME
  19. PROCRIT [Concomitant]
     Indication: ANAEMIA
  20. SODIUM BICARBONATE [Concomitant]
     Indication: PRODUCT USED FOR UNKNOWN INDICATION
  21. SOLUMEDROL [Concomitant]
     Indication: PRODUCT USED FOR UNKNOWN INDICATION

REACTIONS (1)
  - Nephrogenic systemic fibrosis [Not Recovered/Not Resolved]
